FAERS Safety Report 5314515-5 (Version None)
Quarter: 2007Q2

REPORT INFORMATION
  Report Type: 
  Country: None (occurrence: None)
  Receive Date: 20070502
  Receipt Date: 20070430
  Transmission Date: 20071010
  Serious: Yes (Hospitalization)
  Sender: FDA-Public Use
  Company Number: US-BAYER-200710210BCC

PATIENT
  Sex: Male

DRUGS (2)
  1. ALEVE [Suspect]
     Indication: ARTHRITIS
     Route: 048
  2. ALEVE [Suspect]
     Route: 048

REACTIONS (1)
  - BLOOD SODIUM DECREASED [None]
